FAERS Safety Report 9322445 (Version 1)
Quarter: 2013Q2

REPORT INFORMATION
  Report Type: Spontaneous
  Country: US (occurrence: US)
  Receive Date: 20130531
  Receipt Date: 20130531
  Transmission Date: 20140414
  Serious: Yes (Hospitalization, Other)
  Sender: FDA-Public Use
  Company Number: US-009507513-1105USA00386

PATIENT
  Sex: Female
  Weight: 60.78 kg

DRUGS (8)
  1. FOSAMAX [Suspect]
     Indication: OSTEOPOROSIS
     Dosage: 70 MG, QW
     Route: 048
     Dates: start: 2002, end: 2010
  2. FOSAMAX [Suspect]
     Indication: OSTEOARTHRITIS
  3. FOSAMAX PLUS D [Suspect]
     Indication: OSTEOPOROSIS
     Dosage: 70 MG, QW
     Route: 048
     Dates: start: 20070523, end: 20080228
  4. FOSAMAX PLUS D [Suspect]
     Indication: OSTEOARTHRITIS
  5. FOSAMAX [Suspect]
     Indication: OSTEOPOROSIS
     Dosage: 70 MG, QW
     Route: 048
     Dates: start: 20080321, end: 20100102
  6. FOSAMAX [Suspect]
     Indication: OSTEOARTHRITIS
  7. ALENDRONATE SODIUM [Suspect]
     Dosage: 70 MG, QW
     Route: 048
  8. COUGH, COLD, AND FLU THERAPIES (UNSPECIFIED) [Concomitant]

REACTIONS (42)
  - Femur fracture [Unknown]
  - Intramedullary rod insertion [Unknown]
  - Femur fracture [Unknown]
  - Intramedullary rod insertion [Unknown]
  - Arthropathy [Unknown]
  - Anaemia [Unknown]
  - Renal failure [Unknown]
  - Osteoarthritis [Unknown]
  - Cellulitis [Unknown]
  - Animal bite [Unknown]
  - Rheumatoid arthritis [Unknown]
  - Constipation [Unknown]
  - Depression [Unknown]
  - Anxiety [Unknown]
  - Rheumatoid arthritis [Unknown]
  - Low turnover osteopathy [Unknown]
  - Hyperlipidaemia [Unknown]
  - Enthesopathy [Unknown]
  - Hypothyroidism [Unknown]
  - Spinal osteoarthritis [Unknown]
  - Hypertension [Unknown]
  - Lumbar spinal stenosis [Unknown]
  - Aortic arteriosclerosis [Unknown]
  - Left ventricular hypertrophy [Unknown]
  - Cataract [Unknown]
  - Dry eye [Unknown]
  - Dacryostenosis acquired [Unknown]
  - Dacryostenosis acquired [Unknown]
  - Leukocytosis [Unknown]
  - Normochromic normocytic anaemia [Unknown]
  - Intervertebral disc protrusion [Unknown]
  - Intervertebral disc protrusion [Unknown]
  - Tendon disorder [Unknown]
  - Joint effusion [Unknown]
  - Loose body in joint [Unknown]
  - Dysuria [Unknown]
  - Cardiac valve disease [Unknown]
  - Bursitis [Unknown]
  - Musculoskeletal pain [Unknown]
  - Drug ineffective [Unknown]
  - Off label use [Unknown]
  - Gastrooesophageal reflux disease [Unknown]
